FAERS Safety Report 8282100-1 (Version None)
Quarter: 2012Q2

REPORT INFORMATION
  Report Type: 
  Country: None (occurrence: None)
  Receive Date: 20120411
  Receipt Date: 20120404
  Transmission Date: 20120825
  Serious: Yes (Hospitalization)
  Sender: FDA-Public Use
  Company Number: 2010SP043248

PATIENT
  Age: 31 Year
  Sex: Female
  Weight: 56.6996 kg

DRUGS (2)
  1. NUVARING [Suspect]
     Indication: CONTRACEPTION
     Dates: start: 20040819, end: 20041001
  2. NEXIUM [Concomitant]

REACTIONS (38)
  - IRRITABLE BOWEL SYNDROME [None]
  - VOMITING [None]
  - CLOSTRIDIUM DIFFICILE COLITIS [None]
  - PNEUMONIA [None]
  - TREATMENT NONCOMPLIANCE [None]
  - GENERALISED ANXIETY DISORDER [None]
  - THROMBOSIS [None]
  - DEHYDRATION [None]
  - DRUG HYPERSENSITIVITY [None]
  - WEIGHT DECREASED [None]
  - BIPOLAR DISORDER [None]
  - DIARRHOEA [None]
  - LIVER DISORDER [None]
  - PLATELET COUNT INCREASED [None]
  - STRESS [None]
  - DEPENDENT PERSONALITY DISORDER [None]
  - BLOOD DISORDER [None]
  - GASTROENTERITIS [None]
  - ABDOMINAL PAIN [None]
  - HYPOKALAEMIA [None]
  - HAEMOGLOBIN DECREASED [None]
  - DYSMENORRHOEA [None]
  - DEPRESSION [None]
  - DYSFUNCTIONAL UTERINE BLEEDING [None]
  - PULMONARY EMBOLISM [None]
  - CARDIAC MURMUR [None]
  - RHINITIS ALLERGIC [None]
  - PULMONARY INFARCTION [None]
  - PLEURAL EFFUSION [None]
  - HEPATIC CYST [None]
  - IMPAIRED WORK ABILITY [None]
  - PELVIC INFLAMMATORY DISEASE [None]
  - WHITE BLOOD CELL COUNT INCREASED [None]
  - GASTROOESOPHAGEAL REFLUX DISEASE [None]
  - NAUSEA [None]
  - HYPONATRAEMIA [None]
  - HAEMATOCRIT DECREASED [None]
  - PULMONARY ARTERY ANEURYSM [None]
